FAERS Safety Report 11329699 (Version 2)
Quarter: 2015Q3

REPORT INFORMATION
  Report Type: Report from Study
  Country: SE (occurrence: SE)
  Receive Date: 20150803
  Receipt Date: 20150814
  Transmission Date: 20151125
  Serious: Yes (Hospitalization)
  Sender: FDA-Public Use
  Company Number: SE-TEVA-582511USA

PATIENT
  Age: 78 Year
  Sex: Male

DRUGS (27)
  1. MOVICOL [Concomitant]
     Active Substance: POLYETHYLENE GLYCOL 3350\POTASSIUM CHLORIDE\SODIUM BICARBONATE\SODIUM CHLORIDE
     Indication: PROPHYLAXIS
     Dosage: UNK UNK, AS NEEDED
     Route: 048
     Dates: start: 20130328
  2. PETHIDIN [Concomitant]
     Active Substance: MEPERIDINE
     Indication: INFUSION RELATED REACTION
     Dosage: 25 MG 1 IN, UNKNOWN FREQ.
     Route: 042
     Dates: start: 20130326
  3. ONDANSETRON [Concomitant]
     Active Substance: ONDANSETRON
     Dosage: 8 MG, 1 IN, UNKNOWN FREQ.
     Route: 042
     Dates: start: 20130424
  4. ONDANSETRON [Concomitant]
     Active Substance: ONDANSETRON
     Dosage: 8 MG, 1 IN, UNKNOWN FREQ.
     Route: 042
     Dates: start: 20130521
  5. ONDANSETRON [Concomitant]
     Active Substance: ONDANSETRON
     Dosage: 8 MG, 1 IN, UNKNOWN FREQ.
     Route: 042
     Dates: start: 20130522
  6. BENDAMUSTINE HYDROCHLORIDE [Suspect]
     Active Substance: BENDAMUSTINE HYDROCHLORIDE
     Indication: CHRONIC LYMPHOCYTIC LEUKAEMIA
     Dosage: UNK, UNKNOWN FREQ.
     Route: 042
  7. CETIRIZIN [Concomitant]
     Active Substance: CETIRIZINE HYDROCHLORIDE
     Indication: PREMEDICATION
     Dosage: 10 MG, 1 IN , UNKNOWN FREQ.
     Route: 048
     Dates: start: 20130326
  8. BETAPRED [Concomitant]
     Active Substance: BETAMETHASONE SODIUM PHOSPHATE
     Indication: INFUSION RELATED REACTION
     Dosage: 8 MG, 1 IN , UNKNOWN FREQ.
     Route: 048
     Dates: start: 20130327
  9. ONDANSETRON [Concomitant]
     Active Substance: ONDANSETRON
     Indication: PREMEDICATION
     Dosage: 8 MG, 1 IN, UNKNOWN FREQ.
     Route: 042
     Dates: start: 20130327
  10. ONDANSETRON [Concomitant]
     Active Substance: ONDANSETRON
     Dosage: 8 MG, 1 IN, UNKNOWN FREQ.
     Route: 042
     Dates: start: 20130717
  11. RITUXIMAB [Suspect]
     Active Substance: RITUXIMAB
     Indication: CHRONIC LYMPHOCYTIC LEUKAEMIA
     Dosage: UNK, UNKNOWN FREQ.
     Route: 065
  12. SOLU-CORTEF [Concomitant]
     Active Substance: HYDROCORTISONE SODIUM SUCCINATE
     Indication: INFUSION RELATED REACTION
     Route: 042
     Dates: start: 20130424
  13. ALLOPURINOL. [Concomitant]
     Active Substance: ALLOPURINOL
     Indication: PROPHYLAXIS
     Route: 048
     Dates: start: 20130328
  14. BETAPRED [Concomitant]
     Active Substance: BETAMETHASONE SODIUM PHOSPHATE
     Dosage: 8 MG, 1 IN , UNKNOWN FREQ.
     Route: 048
     Dates: start: 20130424
  15. ONDANSETRON [Concomitant]
     Active Substance: ONDANSETRON
     Dosage: 8 MG, 1 IN, UNKNOWN FREQ.
     Route: 042
     Dates: start: 20130619
  16. ONDANSETRON [Concomitant]
     Active Substance: ONDANSETRON
     Dosage: 8 MG, 1 IN, UNKNOWN FREQ.
     Route: 042
     Dates: start: 20130620
  17. ONDANSETRON [Concomitant]
     Active Substance: ONDANSETRON
     Dosage: 8 MG, 1 IN, UNKNOWN FREQ.
     Route: 042
     Dates: start: 20130812
  18. PARACETAMOL [Concomitant]
     Active Substance: ACETAMINOPHEN
     Dosage: 1 G, 1 IN, UNKNOWN FREQ.
     Route: 048
     Dates: start: 20150328
  19. ONDANSETRON [Concomitant]
     Active Substance: ONDANSETRON
     Dosage: 8 MG, 1 IN, UNKNOWN FREQ.
     Route: 042
     Dates: start: 20130425
  20. PARACETAMOL [Concomitant]
     Active Substance: ACETAMINOPHEN
     Indication: PREMEDICATION
     Dosage: 1 G, 1 IN, UNKNOWN FREQ.
     Route: 048
     Dates: start: 20150327
  21. CETIRIZIN [Concomitant]
     Active Substance: CETIRIZINE HYDROCHLORIDE
     Dosage: 10 MG, 1 IN , UNKNOWN FREQ.
     Route: 048
     Dates: start: 20130327
  22. BETAPRED [Concomitant]
     Active Substance: BETAMETHASONE SODIUM PHOSPHATE
     Indication: PREMEDICATION
     Dosage: 8 MG, 1 IN , UNKNOWN FREQ.
     Route: 048
     Dates: start: 20130326
  23. ONDANSETRON [Concomitant]
     Active Substance: ONDANSETRON
     Dosage: 8 MG, 1 IN, UNKNOWN FREQ.
     Route: 042
     Dates: start: 20130718
  24. TAVEGYL [Concomitant]
     Active Substance: CLEMASTINE FUMARATE
     Indication: INFUSION RELATED REACTION
     Dosage: 2 MG, 1 IN, UNKNOWN FREQ.
     Route: 042
     Dates: start: 20130424
  25. PARACETAMOL [Concomitant]
     Active Substance: ACETAMINOPHEN
     Dosage: 1 G, 1 IN, UNKNOWN FREQ.
     Route: 048
     Dates: start: 20150424
  26. ONDANSETRON [Concomitant]
     Active Substance: ONDANSETRON
     Dosage: 8 MG, 1 IN, UNKNOWN FREQ.
     Route: 042
     Dates: start: 20130328
  27. OMEPRAZOLE. [Concomitant]
     Active Substance: OMEPRAZOLE
     Indication: GASTROOESOPHAGEAL REFLUX DISEASE
     Route: 048
     Dates: start: 20130730

REACTIONS (2)
  - Dyspnoea [Recovered/Resolved]
  - Chest pain [Recovered/Resolved]

NARRATIVE: CASE EVENT DATE: 20150720
